FAERS Safety Report 9496824 (Version 1)
Quarter: 2013Q3

REPORT INFORMATION
  Report Type: Spontaneous
  Country: US (occurrence: None)
  Receive Date: 20130903
  Receipt Date: 20130903
  Transmission Date: 20140515
  Serious: No
  Sender: FDA-Public Use
  Company Number: None

PATIENT
  Age: 20 Year
  Sex: Male
  Weight: 83.92 kg

DRUGS (1)
  1. ZYRTEC [Suspect]
     Dosage: 5+ YEARS

REACTIONS (2)
  - Drug withdrawal syndrome [None]
  - Pruritus generalised [None]
